FAERS Safety Report 8762616 (Version 1)
Quarter: 2012Q4

REPORT INFORMATION
  Report Type: 
  Country: CN (occurrence: CN)
  Receive Date: 20120830
  Receipt Date: 20120830
  Transmission Date: 20130627
  Serious: Yes (Other)
  Sender: FDA-Public Use
  Company Number: CN-ROCHE-1103491

PATIENT
  Sex: Female
  Weight: 50 kg

DRUGS (1)
  1. ROCEPHIN [Suspect]
     Indication: SWELLING
     Route: 041
     Dates: start: 20110803, end: 20110817

REACTIONS (2)
  - Hepatic failure [Not Recovered/Not Resolved]
  - Rash [Not Recovered/Not Resolved]
